FAERS Safety Report 13992233 (Version 2)
Quarter: 2017Q4

REPORT INFORMATION
  Report Type: Spontaneous
  Country: US (occurrence: US)
  Receive Date: 20170920
  Receipt Date: 20171123
  Transmission Date: 20180321
  Serious: No
  Sender: FDA-Public Use
  Company Number: US-JNJFOC-20170805897

PATIENT
  Age: 55 Year
  Sex: Male
  Weight: 112.94 kg

DRUGS (4)
  1. RISPERDAL CONSTA [Suspect]
     Active Substance: RISPERIDONE
     Indication: SCHIZOAFFECTIVE DISORDER
     Route: 030
     Dates: start: 2014
  2. WELLBUTRIN [Concomitant]
     Active Substance: BUPROPION HYDROCHLORIDE
     Route: 065
  3. LATUDA [Concomitant]
     Active Substance: LURASIDONE HYDROCHLORIDE
     Route: 065
     Dates: start: 20170713
  4. CLONAZEPAM. [Concomitant]
     Active Substance: CLONAZEPAM
     Route: 065

REACTIONS (3)
  - Drug dose omission [Unknown]
  - Inappropriate schedule of drug administration [Unknown]
  - Product physical issue [Unknown]

NARRATIVE: CASE EVENT DATE: 20170804
